FAERS Safety Report 25507248 (Version 1)
Quarter: 2025Q3

REPORT INFORMATION
  Report Type: Spontaneous
  Country: GB (occurrence: GB)
  Receive Date: 20250703
  Receipt Date: 20250703
  Transmission Date: 20251021
  Serious: No
  Sender: ALKEM
  Company Number: None

PATIENT
  Age: 28 Year
  Sex: Female
  Weight: 53 kg

DRUGS (4)
  1. SOLIFENACIN [Suspect]
     Active Substance: SOLIFENACIN
     Indication: Product used for unknown indication
     Route: 065
  2. DIBUCAINE [Concomitant]
     Active Substance: DIBUCAINE
     Indication: Ill-defined disorder
     Route: 065
     Dates: start: 20240614
  3. Contulen [Concomitant]
     Indication: Product used for unknown indication
     Route: 065
  4. Millinette [Concomitant]
     Indication: Product used for unknown indication
     Route: 065

REACTIONS (1)
  - Vision blurred [Recovered/Resolved]

NARRATIVE: CASE EVENT DATE: 20231023
